FAERS Safety Report 21260471 (Version 1)
Quarter: 2022Q3

REPORT INFORMATION
  Report Type: Spontaneous
  Country: DK (occurrence: DK)
  Receive Date: 20220826
  Receipt Date: 20220826
  Transmission Date: 20221027
  Serious: Yes (Hospitalization)
  Sender: FDA-Public Use
  Company Number: None

PATIENT
  Age: 81 Year
  Sex: Female
  Weight: 75 kg

DRUGS (3)
  1. FULVESTRANT [Suspect]
     Active Substance: FULVESTRANT
     Indication: Breast neoplasm
     Dosage: STRENGTH: 250 MG , UNIT DOSE :  500MG, THERAPY END DATE : NASK, FREQUENCY TIME : 1 MONTH
     Route: 065
     Dates: start: 201910
  2. XGEVA [Suspect]
     Active Substance: DENOSUMAB
     Indication: Hypercalcaemia of malignancy
     Dosage: STRENGTH: 120 MG, UNIT DOSE :  120MG ,  FREQUENCY TIME : 4 WEEKS, THERAPY END DATE : NASK
     Route: 065
     Dates: start: 201910
  3. IBRANCE [Suspect]
     Active Substance: PALBOCICLIB
     Indication: Breast neoplasm
     Dosage: DOSAGE: 1 CAPSULE FOR 21 DAYS AT A TIME, STRENGTH: 75 MG , UNIT DOSE :  75 MG,  FREQUENCY TIME : 1 D
     Route: 065
     Dates: start: 201910, end: 202204

REACTIONS (3)
  - Ascites [Not Recovered/Not Resolved]
  - Hepatic enzyme abnormal [Recovering/Resolving]
  - Portal hypertension [Not Recovered/Not Resolved]

NARRATIVE: CASE EVENT DATE: 20220301
